FAERS Safety Report 7384062 (Version 4)
Quarter: 2015Q3

REPORT INFORMATION
  Report Type: Spontaneous
  Country: FR (occurrence: FR)
  Receive Date: 20100511
  Receipt Date: 20150929
  Transmission Date: 20151125
  Serious: Yes (Life-Threatening)
  Sender: FDA-Public Use
  Company Number: FR-PFIZER INC-2010055174

PATIENT
  Age: 24 Year
  Sex: Male

DRUGS (22)
  1. FLAGYL [Suspect]
     Active Substance: METRONIDAZOLE\METRONIDAZOLE HYDROCHLORIDE
     Dosage: UNK
     Route: 042
     Dates: start: 20100125, end: 20100219
  2. ROCEPHINE [Suspect]
     Active Substance: CEFTRIAXONE SODIUM
     Dosage: UNK
     Dates: end: 20100227
  3. VFEND [Suspect]
     Active Substance: VORICONAZOLE
     Indication: ASPERGILLUS INFECTION
     Dosage: 320 MG, 2X/DAY
     Route: 042
     Dates: start: 20100119, end: 20100202
  4. MIDAZOLAM [Suspect]
     Active Substance: MIDAZOLAM\MIDAZOLAM HYDROCHLORIDE
     Indication: SEDATION
     Dosage: 4 MG PER HOUR THEN 10MG PER HOUR
     Route: 042
     Dates: start: 20100112
  5. PROPOFOL. [Suspect]
     Active Substance: PROPOFOL
     Dosage: 150 MG PER HOUR
     Route: 042
     Dates: start: 20100128, end: 20100128
  6. SUFENTANIL [Suspect]
     Active Substance: SUFENTANIL
     Dosage: 50 UG, PER HOUR
     Route: 042
  7. SUFENTANIL [Suspect]
     Active Substance: SUFENTANIL
     Dosage: 60 UG, PER HOUR
     Route: 042
     Dates: start: 20100124, end: 20100124
  8. NIMBEX [Suspect]
     Active Substance: CISATRACURIUM BESYLATE
     Indication: SEDATION
     Dosage: 12 MG TO 30 MG, PER  HOUR
     Route: 042
     Dates: start: 20100119, end: 20100201
  9. METHYLPREDNISOLONE. [Concomitant]
     Active Substance: METHYLPREDNISOLONE
     Indication: SEDATION
     Dosage: 70 MG PER DAY
     Route: 042
     Dates: start: 20100125, end: 20100202
  10. ATRACURIUM [Suspect]
     Active Substance: ATRACURIUM
     Dosage: 50 MG, PER HOUR
     Route: 042
     Dates: start: 20100207, end: 20100207
  11. ROCEPHINE [Suspect]
     Active Substance: CEFTRIAXONE SODIUM
     Dosage: UNK
     Route: 042
     Dates: start: 20100119, end: 20100125
  12. KETAMINE [Concomitant]
     Active Substance: KETAMINE
     Dosage: 15 MG, PER HOUR
     Dates: start: 20100207, end: 20100207
  13. SUFENTANIL [Suspect]
     Active Substance: SUFENTANIL
     Indication: SEDATION
     Dosage: 30 UG, PER HOUR
     Route: 042
     Dates: start: 20100112
  14. KETAMINE [Concomitant]
     Active Substance: KETAMINE
     Dosage: 15 MG, PER HOUR
     Dates: start: 20100202, end: 20100202
  15. PANCURONIUM BROMIDE. [Suspect]
     Active Substance: PANCURONIUM BROMIDE
     Indication: SEDATION
     Dosage: UNK
     Route: 042
     Dates: start: 20100201, end: 20100202
  16. ATRACURIUM [Suspect]
     Active Substance: ATRACURIUM
     Indication: SEDATION
     Dosage: 50MG, PER HOUR
     Route: 042
     Dates: start: 20100201, end: 20100202
  17. ATRACURIUM [Suspect]
     Active Substance: ATRACURIUM
     Dosage: 80MG TO 100MG, PER HOUR
     Route: 042
     Dates: start: 20100203, end: 20100206
  18. BRICANYL - SLOW RELEASE [Concomitant]
     Dosage: 1 MG TO 2 MG PER HOUR
     Route: 042
  19. LOVENOX [Concomitant]
     Active Substance: ENOXAPARIN SODIUM
     Dosage: 40 IU
     Dates: end: 20100203
  20. PROPOFOL. [Suspect]
     Active Substance: PROPOFOL
     Indication: SEDATION
     Dosage: 100 MG, PER HOUR
     Route: 042
     Dates: start: 20100124, end: 20100125
  21. PROPOFOL. [Suspect]
     Active Substance: PROPOFOL
     Dosage: 100 MG, PER HOUR
     Route: 042
     Dates: start: 20100129, end: 20100202
  22. METHYLPREDNISOLONE. [Concomitant]
     Active Substance: METHYLPREDNISOLONE
     Dosage: 60MG THEN 40MG THEN 30MG
     Dates: start: 20100203

REACTIONS (3)
  - Acute kidney injury [Recovered/Resolved]
  - Rhabdomyolysis [Recovered/Resolved]
  - Propofol infusion syndrome [Recovered/Resolved]

NARRATIVE: CASE EVENT DATE: 20100202
